FAERS Safety Report 9996355 (Version 1)
Quarter: 2014Q1

REPORT INFORMATION
  Report Type: Report from Study
  Country: US (occurrence: US)
  Receive Date: 20140311
  Receipt Date: 20140311
  Transmission Date: 20141002
  Serious: Yes (Hospitalization)
  Sender: FDA-Public Use
  Company Number: US-GLAXOSMITHKLINE-A1064131A

PATIENT
  Age: 64 Year
  Sex: Male
  Weight: 78.5 kg

DRUGS (10)
  1. DABRAFENIB [Suspect]
     Indication: PAPILLARY THYROID CANCER
     Dosage: 100MG TWICE PER DAY
     Route: 048
     Dates: start: 20130930
  2. MICARDIS [Concomitant]
  3. CLONIDINE [Concomitant]
  4. LABETALOL [Concomitant]
  5. EPLERENONE [Concomitant]
  6. LISINOPRIL [Concomitant]
  7. MINOXIDIL [Concomitant]
  8. SYNTHROID [Concomitant]
  9. RAPAFLO [Concomitant]
  10. POTASSIUM CHLORIDE [Concomitant]

REACTIONS (1)
  - Flank pain [Unknown]
